FAERS Safety Report 23713781 (Version 2)
Quarter: 2024Q2

REPORT INFORMATION
  Report Type: Report from Study
  Country: CN (occurrence: CN)
  Receive Date: 20240405
  Receipt Date: 20240418
  Transmission Date: 20240716
  Serious: Yes (Other)
  Sender: FDA-Public Use
  Company Number: CN-ROCHE-3536193

PATIENT
  Sex: Female

DRUGS (4)
  1. GAVRETO [Suspect]
     Active Substance: PRALSETINIB
     Indication: Thyroid cancer
     Route: 048
     Dates: start: 202203
  2. GAVRETO [Suspect]
     Active Substance: PRALSETINIB
     Route: 048
  3. GAVRETO [Suspect]
     Active Substance: PRALSETINIB
     Route: 048
  4. LEVOTHYROXINE SODIUM [Concomitant]
     Active Substance: LEVOTHYROXINE SODIUM

REACTIONS (6)
  - Hyperpyrexia [Recovered/Resolved]
  - COVID-19 [Unknown]
  - Hypertension [Recovered/Resolved]
  - Asthenia [Recovered/Resolved]
  - Constipation [Recovered/Resolved]
  - Blood creatinine increased [Recovered/Resolved]

NARRATIVE: CASE EVENT DATE: 20220301
